FAERS Safety Report 17718110 (Version 3)
Quarter: 2020Q2

REPORT INFORMATION
  Report Type: Spontaneous
  Country: JP (occurrence: JP)
  Receive Date: 20200428
  Receipt Date: 20200515
  Transmission Date: 20200714
  Serious: Yes (Death, Hospitalization)
  Sender: FDA-Public Use
  Company Number: JP-ELI_LILLY_AND_COMPANY-JP202004010016

PATIENT
  Age: 80 Year
  Sex: Male

DRUGS (2)
  1. ASPIRIN ANALGESIC [Concomitant]
     Indication: PRODUCT USED FOR UNKNOWN INDICATION
     Dosage: 100 MG, DAILY
  2. PRASUGREL HYDROCHLORIDE [Suspect]
     Active Substance: PRASUGREL HYDROCHLORIDE
     Indication: PRODUCT USED FOR UNKNOWN INDICATION
     Dosage: 3.75 MG, DAILY
     Route: 065
     Dates: start: 201805

REACTIONS (3)
  - Ventricular tachycardia [Unknown]
  - Vascular stent thrombosis [Unknown]
  - Death [Fatal]

NARRATIVE: CASE EVENT DATE: 20200415
